FAERS Safety Report 10228505 (Version 2)
Quarter: 2014Q2

REPORT INFORMATION
  Report Type: Spontaneous
  Country: US (occurrence: US)
  Receive Date: 20140610
  Receipt Date: 20140613
  Transmission Date: 20141212
  Serious: Yes (Other)
  Sender: FDA-Public Use
  Company Number: US-TEVA-487220USA

PATIENT
  Age: 18 Year
  Sex: Female
  Weight: 44.49 kg

DRUGS (4)
  1. PARAGARD 380A [Suspect]
     Indication: CONTRACEPTION
     Route: 015
     Dates: start: 20140527
  2. ATIVAN [Concomitant]
     Indication: BIPOLAR DISORDER
  3. DEPAKOTE [Concomitant]
     Indication: BIPOLAR DISORDER
  4. LAMICTAL [Concomitant]
     Indication: BIPOLAR DISORDER

REACTIONS (1)
  - Device dislocation [Not Recovered/Not Resolved]
